FAERS Safety Report 19198665 (Version 3)
Quarter: 2021Q2

REPORT INFORMATION
  Report Type: Spontaneous
  Country: US (occurrence: US)
  Receive Date: 20210430
  Receipt Date: 20210603
  Transmission Date: 20210717
  Serious: Yes (Disabling, Other)
  Sender: FDA-Public Use
  Company Number: US-SA-2021SA140407

PATIENT
  Age: 54 Year
  Sex: Male

DRUGS (9)
  1. BACLOFEN. [Concomitant]
     Active Substance: BACLOFEN
     Dosage: 1/2 TABLET IN MORNING TAKE 1 TABLET AT BEDTIME, BID
     Route: 048
  2. VITAMIN D3 [Concomitant]
     Active Substance: CHOLECALCIFEROL
     Dosage: 5000 U, QD
     Route: 048
  3. ASPIRIN [ACETYLSALICYLIC ACID] [Concomitant]
     Active Substance: ASPIRIN
     Dosage: 81 MG
     Route: 048
  4. TENORMIN [Concomitant]
     Active Substance: ATENOLOL
     Dosage: 50 MG, QD
     Route: 048
  5. GLUCOPHAGE XR [Concomitant]
     Active Substance: METFORMIN HYDROCHLORIDE
     Dosage: 500 MG, QD
     Route: 048
  6. PROAIR HFA [Concomitant]
     Active Substance: ALBUTEROL SULFATE
     Dosage: 1 DF, (4 TIMES A DAY AS NEEDED) PRN
     Route: 048
  7. AUBAGIO [Suspect]
     Active Substance: TERIFLUNOMIDE
     Indication: MULTIPLE SCLEROSIS
     Dosage: UNK, QD
     Route: 048
     Dates: start: 20170727
  8. LOTREL [Concomitant]
     Active Substance: AMLODIPINE BESYLATE\BENAZEPRIL HYDROCHLORIDE
     Dosage: 1 DF, QD
     Route: 048
  9. EFFEXOR [Concomitant]
     Active Substance: VENLAFAXINE HYDROCHLORIDE
     Dosage: 225 MG, QD
     Route: 048

REACTIONS (10)
  - Secondary progressive multiple sclerosis [Unknown]
  - Sciatica [Not Recovered/Not Resolved]
  - Muscle spasticity [Recovering/Resolving]
  - Epidural lipomatosis [Unknown]
  - Mobility decreased [Unknown]
  - Dysstasia [Unknown]
  - Limb discomfort [Unknown]
  - Back pain [Not Recovered/Not Resolved]
  - Multiple sclerosis [Unknown]
  - Fall [Unknown]

NARRATIVE: CASE EVENT DATE: 20201007
